FAERS Safety Report 17459175 (Version 1)
Quarter: 2020Q1

REPORT INFORMATION
  Report Type: Spontaneous
  Country: US (occurrence: US)
  Receive Date: 20200225
  Receipt Date: 20200225
  Transmission Date: 20200409
  Serious: No
  Sender: FDA-Public Use
  Company Number: US-IGSA-SR10009260

PATIENT
  Age: 61 Year
  Sex: Male
  Weight: 81 kg

DRUGS (8)
  1. SPIRIVA [Concomitant]
     Active Substance: TIOTROPIUM BROMIDE MONOHYDRATE
  2. PROLASTIN-C LIQUID [Suspect]
     Active Substance: .ALPHA.1-PROTEINASE INHIBITOR HUMAN
     Indication: ALPHA-1 ANTI-TRYPSIN DEFICIENCY
     Dosage: 4860 MG, Q.WK.
     Route: 042
     Dates: start: 20191008
  3. NAPROXEN. [Concomitant]
     Active Substance: NAPROXEN
  4. LISINOPRIL. [Concomitant]
     Active Substance: LISINOPRIL
     Indication: ALPHA-1 ANTI-TRYPSIN DEFICIENCY
  5. LISINOPRIL. [Concomitant]
     Active Substance: LISINOPRIL
     Indication: EMPHYSEMA
  6. TERAZOSIN [Concomitant]
     Active Substance: TERAZOSIN HYDROCHLORIDE
  7. TRAZODONE [Concomitant]
     Active Substance: TRAZODONE HYDROCHLORIDE
  8. BREO ELLIPTA [Concomitant]
     Active Substance: FLUTICASONE FUROATE\VILANTEROL TRIFENATATE

REACTIONS (3)
  - Insomnia [Recovering/Resolving]
  - Restlessness [Recovering/Resolving]
  - Incorrect drug administration rate [Recovering/Resolving]

NARRATIVE: CASE EVENT DATE: 20191008
